FAERS Safety Report 4422186-5 (Version None)
Quarter: 2004Q3

REPORT INFORMATION
  Report Type: 
  Country: None (occurrence: None)
  Receive Date: 20040810
  Receipt Date: 20030307
  Transmission Date: 20050211
  Serious: Yes (Hospitalization)
  Sender: FDA-Public Use
  Company Number: US-ROCHE-333534

PATIENT
  Age: 44 Year
  Sex: Female

DRUGS (2)
  1. PEGASYS [Suspect]
     Indication: HEPATITIS C
     Dosage: STRENGTH REPORTED AS 180 MCG/CC.
     Route: 058
     Dates: start: 20021012, end: 20030312
  2. REBETOL [Concomitant]

REACTIONS (5)
  - ANXIETY [None]
  - ARRHYTHMIA [None]
  - DEPRESSION [None]
  - HEART RATE INCREASED [None]
  - PALPITATIONS [None]
